FAERS Safety Report 5288913-2 (Version None)
Quarter: 2007Q1

REPORT INFORMATION
  Report Type: 
  Country: None (occurrence: None)
  Receive Date: 20070119
  Receipt Date: 20061101
  Transmission Date: 20070707
  Serious: Yes (Other)
  Sender: FDA-Public Use
  Company Number: BDI-008820

PATIENT
  Sex: Female

DRUGS (1)
  1. PROHANCE [Suspect]
     Indication: NUCLEAR MAGNETIC RESONANCE IMAGING
     Dosage: 40 ML ONCE IV
     Route: 042
     Dates: start: 20061101, end: 20061101

REACTIONS (4)
  - DIZZINESS [None]
  - HYPOTENSION [None]
  - PRURITUS [None]
  - URTICARIA [None]
